FAERS Safety Report 11564371 (Version 1)
Quarter: 2015Q3

REPORT INFORMATION
  Report Type: Spontaneous
  Country: US (occurrence: US)
  Receive Date: 20150916
  Receipt Date: 20150916
  Transmission Date: 20151125
  Serious: No
  Sender: FDA-Public Use
  Company Number: US-ELI_LILLY_AND_COMPANY-US200903003465

PATIENT
  Sex: Female

DRUGS (4)
  1. AMLODIPINE [Concomitant]
     Active Substance: AMLODIPINE BESYLATE
  2. FORTEO [Suspect]
     Active Substance: TERIPARATIDE
     Dosage: UNK, DAILY (1/D)
  3. METOPROLOL [Concomitant]
     Active Substance: METOPROLOL
  4. MICARDIS [Concomitant]
     Active Substance: TELMISARTAN

REACTIONS (5)
  - Muscular weakness [Not Recovered/Not Resolved]
  - Hip deformity [Not Recovered/Not Resolved]
  - Fatigue [Not Recovered/Not Resolved]
  - Stress [Unknown]
  - Arthropathy [Not Recovered/Not Resolved]

NARRATIVE: CASE EVENT DATE: 2009
